FAERS Safety Report 20136757 (Version 2)
Quarter: 2022Q1

REPORT INFORMATION
  Report Type: Spontaneous
  Country: US (occurrence: US)
  Receive Date: 20211201
  Receipt Date: 20220303
  Transmission Date: 20220424
  Serious: No
  Sender: FDA-Public Use
  Company Number: US-INSUD PHARMA-2111US02925

PATIENT

DRUGS (4)
  1. PROGESTERONE [Suspect]
     Active Substance: PROGESTERONE
     Indication: Hot flush
     Dosage: 100 MG DAILY
     Route: 048
     Dates: start: 20210813, end: 20210815
  2. PROGESTERONE [Suspect]
     Active Substance: PROGESTERONE
     Indication: Sleep disorder
  3. PROGESTERONE [Suspect]
     Active Substance: PROGESTERONE
     Indication: Hot flush
     Dosage: 100 MG DAILY
     Route: 048
     Dates: start: 202108, end: 20210822
  4. PROGESTERONE [Suspect]
     Active Substance: PROGESTERONE
     Indication: Sleep disorder
     Dosage: 100 MG DAILY
     Route: 048
     Dates: start: 202107, end: 202108

REACTIONS (25)
  - Peripheral swelling [Not Recovered/Not Resolved]
  - Peripheral coldness [Not Recovered/Not Resolved]
  - Cyst [Not Recovered/Not Resolved]
  - Joint stiffness [Not Recovered/Not Resolved]
  - Chest pain [Not Recovered/Not Resolved]
  - Productive cough [Recovered/Resolved]
  - Dysphonia [Recovered/Resolved]
  - Sleep disorder [Not Recovered/Not Resolved]
  - Back pain [Not Recovered/Not Resolved]
  - Fatigue [Not Recovered/Not Resolved]
  - Respiratory disorder [Not Recovered/Not Resolved]
  - Dyspnoea [Unknown]
  - Painful respiration [Unknown]
  - Generalised oedema [Unknown]
  - Chills [Unknown]
  - Feeling cold [Not Recovered/Not Resolved]
  - Cardiovascular disorder [Not Recovered/Not Resolved]
  - Immune system disorder [Not Recovered/Not Resolved]
  - Autoimmune disorder [Not Recovered/Not Resolved]
  - Gait disturbance [Not Recovered/Not Resolved]
  - Pain [Unknown]
  - Quality of life decreased [Not Recovered/Not Resolved]
  - Housebound [Not Recovered/Not Resolved]
  - Off label use [Unknown]
  - Product substitution issue [Unknown]

NARRATIVE: CASE EVENT DATE: 20210701
